FAERS Safety Report 4883261-4 (Version None)
Quarter: 2006Q1

REPORT INFORMATION
  Report Type: 
  Country: None (occurrence: None)
  Receive Date: 20060118
  Receipt Date: 20051212
  Transmission Date: 20060701
  Serious: No
  Sender: FDA-Public Use
  Company Number: PHBS2005JP18407

PATIENT
  Age: 81 Year
  Sex: Female

DRUGS (4)
  1. DIOVAN [Suspect]
     Indication: HYPERTENSION
     Dosage: UNK, UNK
     Route: 048
  2. LIPITOR [Concomitant]
     Dosage: UNK, UNK
     Route: 048
  3. AMARYL [Suspect]
     Dosage: 2 MG/DAY
     Route: 048
  4. AMLODIN [Concomitant]
     Dosage: UNK, UNK
     Route: 048

REACTIONS (3)
  - ANAEMIA [None]
  - HAEMATOCRIT DECREASED [None]
  - WHITE BLOOD CELL COUNT DECREASED [None]
